FAERS Safety Report 9777719 (Version 1)
Quarter: 2013Q4

REPORT INFORMATION
  Report Type: Spontaneous
  Country: CA (occurrence: CA)
  Receive Date: 20131223
  Receipt Date: 20131223
  Transmission Date: 20140711
  Serious: Yes (Other)
  Sender: FDA-Public Use
  Company Number: CA-JNJFOC-20131210869

PATIENT
  Sex: 0

DRUGS (1)
  1. NICORETTE QUICKMIST 1MG [Suspect]
     Indication: SMOKING CESSATION THERAPY
     Route: 055

REACTIONS (2)
  - Overdose [Unknown]
  - Nicotine dependence [Unknown]
